FAERS Safety Report 14505652 (Version 2)
Quarter: 2018Q2

REPORT INFORMATION
  Report Type: Spontaneous
  Country: AR (occurrence: AR)
  Receive Date: 20180208
  Receipt Date: 20180613
  Transmission Date: 20180711
  Serious: Yes (Hospitalization, Other)
  Sender: FDA-Public Use
  Company Number: AR-PFIZER INC-2018056852

PATIENT
  Age: 72 Year
  Sex: Female

DRUGS (1)
  1. XELJANZ [Suspect]
     Active Substance: TOFACITINIB CITRATE
     Indication: RHEUMATOID ARTHRITIS
     Dosage: 5 MG, 2X/DAY
     Dates: start: 20140227

REACTIONS (4)
  - Urinary bladder polyp [Recovered/Resolved]
  - Malaise [Recovered/Resolved]
  - Gait disturbance [Recovering/Resolving]
  - Scoliosis [Recovering/Resolving]

NARRATIVE: CASE EVENT DATE: 201708
